FAERS Safety Report 8151063-1 (Version None)
Quarter: 2012Q1

REPORT INFORMATION
  Report Type: 
  Country: None (occurrence: None)
  Receive Date: 20120220
  Receipt Date: 20120206
  Transmission Date: 20120608
  Serious: Yes (Other)
  Sender: FDA-Public Use
  Company Number: JP-MERCK-1201USA01796

PATIENT
  Age: 82 Year
  Sex: Female

DRUGS (4)
  1. JANUVIA [Suspect]
     Route: 048
     Dates: start: 20111115, end: 20111121
  2. METFORMIN HCL [Concomitant]
     Route: 065
  3. JANUVIA [Suspect]
     Indication: TYPE 2 DIABETES MELLITUS
     Route: 048
     Dates: start: 20110516, end: 20111024
  4. GLIMICRON [Concomitant]
     Route: 065
     Dates: end: 20111121

REACTIONS (2)
  - HYPOGLYCAEMIA [None]
  - PANCREATITIS ACUTE [None]
